FAERS Safety Report 5092973-1 (Version None)
Quarter: 2006Q3

REPORT INFORMATION
  Report Type: 
  Country: None (occurrence: None)
  Receive Date: 20060830
  Receipt Date: 20060803
  Transmission Date: 20061208
  Serious: Yes (Other)
  Sender: FDA-Public Use
  Company Number: US-GLAXOSMITHKLINE-A0615070A

PATIENT
  Age: 24 Year
  Sex: Female
  Weight: 54.5 kg

DRUGS (1)
  1. IMITREX [Suspect]
     Indication: MIGRAINE
     Dosage: 1INJ AS REQUIRED
     Route: 030
     Dates: start: 20020131, end: 20050220

REACTIONS (2)
  - INJECTION SITE ANAESTHESIA [None]
  - LIPOATROPHY [None]
